FAERS Safety Report 20428353 (Version 1)
Quarter: 2022Q1

REPORT INFORMATION
  Report Type: Report from Study
  Country: US (occurrence: US)
  Receive Date: 20220204
  Receipt Date: 20220204
  Transmission Date: 20220424
  Serious: Yes (Death, Other)
  Sender: FDA-Public Use
  Company Number: US-CHIESI-2022CHF00406

PATIENT
  Age: 71 Year
  Sex: Male
  Weight: 103 kg

DRUGS (10)
  1. KENGREAL [Suspect]
     Active Substance: CANGRELOR
     Indication: Myocardial infarction
     Dosage: 30 MICROGRAM/KILOGRAM, (1X)
     Route: 040
     Dates: start: 20211231, end: 20211231
  2. KENGREAL [Suspect]
     Active Substance: CANGRELOR
     Dosage: UNK UNK, (1X)
     Route: 042
     Dates: start: 20211231, end: 20211231
  3. KENGREAL [Suspect]
     Active Substance: CANGRELOR
     Dosage: 30 MICROGRAM/KILOGRAM, (1X)
     Route: 040
     Dates: start: 20220104, end: 20220109
  4. KENGREAL [Suspect]
     Active Substance: CANGRELOR
     Dosage: UNK UNK, (1X)
     Route: 042
     Dates: start: 20220104, end: 20220109
  5. ASPIRIN [Concomitant]
     Active Substance: ASPIRIN
     Indication: Product used for unknown indication
     Dosage: UNK UNK, QD
  6. NYSTATIN [Concomitant]
     Active Substance: NYSTATIN
     Indication: Product used for unknown indication
     Dosage: UNK
  7. TIROFIBAN [Concomitant]
     Active Substance: TIROFIBAN
     Indication: Antiplatelet therapy
     Dosage: UNK
     Dates: start: 20201231, end: 20211231
  8. ENOXAPARIN [Concomitant]
     Active Substance: ENOXAPARIN
     Indication: Product used for unknown indication
     Dosage: UNK
     Dates: start: 20201231, end: 20220104
  9. FENTANYL [Concomitant]
     Active Substance: FENTANYL
     Indication: Product used for unknown indication
     Dosage: UNK
     Dates: start: 20211230
  10. HEPARIN [Concomitant]
     Active Substance: HEPARIN SODIUM
     Indication: Product used for unknown indication
     Dosage: UNK
     Dates: start: 20211230, end: 20211230

REACTIONS (4)
  - Cardiac arrest [Fatal]
  - Contraindicated product administered [Fatal]
  - Off label use [Recovered/Resolved]
  - Off label use [Recovered/Resolved]

NARRATIVE: CASE EVENT DATE: 20211231
